FAERS Safety Report 5926956-3 (Version None)
Quarter: 2008Q4

REPORT INFORMATION
  Report Type: 
  Country: None (occurrence: None)
  Receive Date: 20081022
  Receipt Date: 20081009
  Transmission Date: 20090506
  Serious: Yes (Hospitalization)
  Sender: FDA-Public Use
  Company Number: JP-EISAI MEDICAL RESEARCH-E2090-00560-SPO-JP

PATIENT
  Sex: Female

DRUGS (16)
  1. EXCEGRAN [Suspect]
     Indication: EPILEPSY
     Route: 048
     Dates: start: 20080313, end: 20080313
  2. EXCEGRAN [Suspect]
     Route: 048
     Dates: start: 20080314, end: 20080414
  3. EXCEGRAN [Suspect]
     Route: 048
     Dates: start: 20080416, end: 20080417
  4. PHENOBARBITAL TAB [Concomitant]
     Indication: EPILEPSY
     Route: 048
     Dates: start: 20060424, end: 20060530
  5. DEPAKENE [Concomitant]
     Indication: EPILEPSY
     Route: 048
     Dates: start: 20060530, end: 20060612
  6. DEPAKENE [Concomitant]
     Route: 048
     Dates: start: 20060613, end: 20080107
  7. DEPAKENE [Concomitant]
     Route: 048
     Dates: start: 20080108, end: 20080306
  8. DEPAKENE [Concomitant]
     Route: 048
     Dates: start: 20080307, end: 20080312
  9. DEPAKENE [Concomitant]
     Route: 048
     Dates: start: 20080313, end: 20080324
  10. DEPAKENE [Concomitant]
     Route: 048
     Dates: start: 20080325, end: 20080414
  11. DEPAKENE [Concomitant]
     Route: 048
     Dates: start: 20080416, end: 20080428
  12. DEPAKENE [Concomitant]
     Route: 048
     Dates: start: 20080429, end: 20080524
  13. MYSTAN [Concomitant]
     Indication: EPILEPSY
     Route: 048
     Dates: start: 20080511, end: 20080526
  14. MYSTAN [Concomitant]
     Route: 048
     Dates: start: 20080527, end: 20080701
  15. ALEVIATIN [Concomitant]
     Route: 048
     Dates: start: 20080610
  16. RIVOTRIL [Concomitant]
     Indication: EPILEPSY
     Dates: start: 20080701

REACTIONS (1)
  - DRUG RASH WITH EOSINOPHILIA AND SYSTEMIC SYMPTOMS [None]
